FAERS Safety Report 15111386 (Version 1)
Quarter: 2018Q3

REPORT INFORMATION
  Report Type: Other
  Country: IT (occurrence: IT)
  Receive Date: 20180705
  Receipt Date: 20180705
  Transmission Date: 20181010
  Serious: Yes (Hospitalization)
  Sender: FDA-Public Use
  Company Number: IT-PURDUE-GBR-2018-0057132

PATIENT
  Age: 59 Year
  Sex: Male

DRUGS (8)
  1. CATAPRESAN                         /00171101/ [Concomitant]
     Active Substance: CLONIDINE
  2. TARGIN [Suspect]
     Active Substance: NALOXONE HYDROCHLORIDE\OXYCODONE HYDROCHLORIDE
     Indication: PAIN
     Dosage: 40 MG, DAILY
     Route: 048
     Dates: start: 20170708, end: 20170809
  3. FUROSEMIDE. [Concomitant]
     Active Substance: FUROSEMIDE
  4. COUMADIN [Concomitant]
     Active Substance: WARFARIN SODIUM
  5. DEPO?MEDROL [Concomitant]
     Active Substance: METHYLPREDNISOLONE ACETATE
  6. ALLOPURINOL. [Concomitant]
     Active Substance: ALLOPURINOL
  7. DEPALGOS [Concomitant]
     Active Substance: ACETAMINOPHEN\OXYCODONE HYDROCHLORIDE
  8. SERTRALINE [Concomitant]
     Active Substance: SERTRALINE HYDROCHLORIDE

REACTIONS (6)
  - Lethargy [Unknown]
  - Dyspnoea [Unknown]
  - Hyporesponsive to stimuli [Unknown]
  - Pyrexia [Unknown]
  - Ileus paralytic [Unknown]
  - Decreased appetite [Unknown]

NARRATIVE: CASE EVENT DATE: 20170809
